FAERS Safety Report 7934505-3 (Version None)
Quarter: 2011Q4

REPORT INFORMATION
  Report Type: 
  Country: None (occurrence: None)
  Receive Date: 20111122
  Receipt Date: 20111111
  Transmission Date: 20120403
  Serious: Yes (Hospitalization, Other)
  Sender: FDA-Public Use
  Company Number: ES-PFIZER INC-2011284449

PATIENT
  Age: 60 Year
  Sex: Male

DRUGS (2)
  1. DRONEDARONE HCL [Suspect]
     Indication: ATRIAL FIBRILLATION
     Dosage: UNK
     Route: 048
     Dates: start: 20110401
  2. AMIODARONE HCL [Suspect]
     Indication: ATRIAL FIBRILLATION
     Dosage: UNK
     Route: 048
     Dates: start: 20111001

REACTIONS (5)
  - CARDIAC FAILURE [None]
  - PAIN [None]
  - OEDEMA [None]
  - EJECTION FRACTION DECREASED [None]
  - ASPHYXIA [None]
